FAERS Safety Report 17535718 (Version 1)
Quarter: 2020Q1

REPORT INFORMATION
  Report Type: Spontaneous
  Country: US (occurrence: US)
  Receive Date: 20200305
  Receipt Date: 20200305
  Transmission Date: 20200409
  Serious: No
  Sender: FDA-Public Use
  Company Number: None

PATIENT
  Sex: Female

DRUGS (1)
  1. KISQALI [Suspect]
     Active Substance: RIBOCICLIB
     Indication: ILL-DEFINED DISORDER
     Route: 048
     Dates: start: 20200114

REACTIONS (3)
  - Dizziness [None]
  - Hyperhidrosis [None]
  - Fatigue [None]
